FAERS Safety Report 5209064-9 (Version None)
Quarter: 2007Q1

REPORT INFORMATION
  Report Type: 
  Country: None (occurrence: None)
  Receive Date: 20070111
  Receipt Date: 20070105
  Transmission Date: 20070707
  Serious: Yes (Hospitalization)
  Sender: FDA-Public Use
  Company Number: 2007-00037

PATIENT
  Age: 47 Year
  Sex: Female

DRUGS (2)
  1. METHYLPREDNISOLONE 4MG TAB [Suspect]
     Indication: MUSCULAR WEAKNESS
     Dosage: 32 MG, DAILY X 7 DAYS, ORAL
     Route: 048
     Dates: start: 20060101, end: 20060101
  2. TOPIRAMATE [Concomitant]

REACTIONS (1)
  - HEPATITIS TOXIC [None]
